FAERS Safety Report 6844800-7 (Version None)
Quarter: 2010Q3

REPORT INFORMATION
  Report Type: 
  Country: None (occurrence: None)
  Receive Date: 20100715
  Receipt Date: 20100701
  Transmission Date: 20110219
  Serious: Yes (Other)
  Sender: FDA-Public Use
  Company Number: PHHY2010KR44468

PATIENT
  Age: 36 Year
  Sex: Female

DRUGS (5)
  1. IMATINIB [Suspect]
     Indication: ACUTE LYMPHOCYTIC LEUKAEMIA
     Dosage: UNK
     Route: 065
  2. CYCLOPHOSPHAMIDE [Concomitant]
  3. IRRADIATION [Concomitant]
  4. METHOTREXATE [Concomitant]
     Indication: GRAFT VERSUS HOST DISEASE
  5. CYCLOSPORINE [Concomitant]
     Indication: GRAFT VERSUS HOST DISEASE

REACTIONS (2)
  - ACUTE LYMPHOCYTIC LEUKAEMIA RECURRENT [None]
  - BONE MARROW TRANSPLANT [None]
